FAERS Safety Report 8938615 (Version 1)
Quarter: 2012Q4

REPORT INFORMATION
  Report Type: Spontaneous
  Country: US (occurrence: None)
  Receive Date: 20121129
  Receipt Date: 20121129
  Transmission Date: 20130627
  Serious: Yes (Other)
  Sender: FDA-Public Use
  Company Number: None

PATIENT
  Age: 63 Year
  Sex: Female
  Weight: 70.31 kg

DRUGS (1)
  1. ENDOGIA ULTRA SURGICAL STAPLER COVIDIEN [Suspect]

REACTIONS (3)
  - Device malfunction [None]
  - Arterial disorder [None]
  - Procedural complication [None]
